FAERS Safety Report 24637282 (Version 1)
Quarter: 2024Q4

REPORT INFORMATION
  Report Type: Report from Study
  Country: JP (occurrence: JP)
  Receive Date: 20241119
  Receipt Date: 20241119
  Transmission Date: 20250114
  Serious: Yes (Death, Hospitalization)
  Sender: RECORDATI
  Company Number: JP-RECORDATI-2020003129

PATIENT

DRUGS (13)
  1. SIGNIFOR LAR [Suspect]
     Active Substance: PASIREOTIDE PAMOATE
     Indication: Pituitary-dependent Cushing^s syndrome
     Dosage: 10 MILLIGRAM, UNKNOWN FREQUENCY
     Route: 030
     Dates: start: 20190703, end: 20190814
  2. SIGNIFOR LAR [Suspect]
     Active Substance: PASIREOTIDE PAMOATE
     Dosage: 10 MILLIGRAM, UNKNOWN FREQUENCY
     Route: 030
     Dates: start: 20190823, end: 20190920
  3. BISOPROLOL FUMARATE [Concomitant]
     Active Substance: BISOPROLOL FUMARATE
     Indication: Disease complication
     Dosage: UNK
     Route: 048
     Dates: start: 20150408
  4. ANAGLIPTIN [Concomitant]
     Active Substance: ANAGLIPTIN
     Indication: Disease complication
     Dosage: 200 MG, DAILY
     Route: 048
     Dates: start: 20150919, end: 20210603
  5. ANAGLIPTIN [Concomitant]
     Active Substance: ANAGLIPTIN
     Dosage: 200 MG
     Route: 048
     Dates: start: 20210812
  6. REPAGLINIDE [Concomitant]
     Active Substance: REPAGLINIDE
     Indication: Disease complication
     Dosage: 0.75 MG, DAILY
     Route: 048
     Dates: start: 20150408, end: 20201111
  7. METYRAPONE [Concomitant]
     Active Substance: METYRAPONE
     Indication: Pituitary-dependent Cushing^s syndrome
     Dosage: UNK
     Route: 048
     Dates: start: 20190814, end: 20190822
  8. METYRAPONE [Concomitant]
     Active Substance: METYRAPONE
     Dosage: UNK
     Route: 048
     Dates: start: 20200624, end: 20200627
  9. CABERGOLINE [Concomitant]
     Active Substance: CABERGOLINE
     Indication: Pituitary-dependent Cushing^s syndrome
     Dosage: UNK
     Route: 048
     Dates: start: 20200427, end: 20200622
  10. METFORMIN HYDROCHLORIDE [Concomitant]
     Active Substance: METFORMIN HYDROCHLORIDE
     Indication: Pituitary-dependent Cushing^s syndrome
     Dosage: 500 MG
     Route: 048
     Dates: start: 20190608, end: 20190712
  11. TRILOSTANE [Concomitant]
     Active Substance: TRILOSTANE
     Indication: Pituitary-dependent Cushing^s syndrome
     Dosage: UNK
     Route: 048
     Dates: start: 20200820
  12. GLICLAZIDE [Concomitant]
     Active Substance: GLICLAZIDE
     Indication: Disease complication
     Dosage: 20 MG, DAILY
     Route: 048
     Dates: start: 20201112, end: 20210717
  13. GLIMEPIRIDE [Concomitant]
     Active Substance: GLIMEPIRIDE
     Indication: Disease complication
     Dosage: 0.5 MG
     Route: 048
     Dates: start: 20210812, end: 20210909

REACTIONS (3)
  - Death [Fatal]
  - Hyperglycaemia [Recovered/Resolved]
  - Hyperglycaemia [Recovered/Resolved]

NARRATIVE: CASE EVENT DATE: 20190708
